FAERS Safety Report 26088487 (Version 1)
Quarter: 2025Q4

REPORT INFORMATION
  Report Type: Report from Study
  Country: US (occurrence: US)
  Receive Date: 20251125
  Receipt Date: 20251125
  Transmission Date: 20260118
  Serious: Yes (Life-Threatening, Hospitalization)
  Sender: PFIZER
  Company Number: US-PFIZER INC-202500231822

PATIENT

DRUGS (1)
  1. VERAPAMIL HCL [Suspect]
     Active Substance: VERAPAMIL HYDROCHLORIDE
     Indication: Type 1 diabetes mellitus
     Dosage: TOOK EXTRA TO COMPENSATE (AT LEAST 720 MG)

REACTIONS (2)
  - Overdose [Unknown]
  - Atrioventricular block [Unknown]
